FAERS Safety Report 8488333-3 (Version None)
Quarter: 2012Q3

REPORT INFORMATION
  Report Type: 
  Country: None (occurrence: None)
  Receive Date: 20120705
  Receipt Date: 20120626
  Transmission Date: 20120928
  Serious: Yes (Other)
  Sender: FDA-Public Use
  Company Number: DK-JNJFOC-20120205091

PATIENT
  Sex: Female

DRUGS (16)
  1. MABTHERA [Concomitant]
     Indication: RHEUMATOID ARTHRITIS
     Dates: start: 20091014
  2. HUMIRA [Suspect]
     Route: 065
     Dates: start: 20100503
  3. IMURAN [Suspect]
     Route: 065
     Dates: start: 20100525
  4. HYDROXYCHLOROQUINE SULFATE [Concomitant]
     Dates: start: 20040513
  5. IMURAN [Suspect]
     Indication: RHEUMATOID ARTHRITIS
     Route: 065
     Dates: start: 20011015
  6. REMICADE [Suspect]
     Indication: RHEUMATOID ARTHRITIS
     Route: 042
     Dates: start: 20020904
  7. CYCLOSPORINE [Concomitant]
     Dates: start: 20040513
  8. LEFLUNOMIDE [Concomitant]
     Dates: start: 20040513
  9. REMICADE [Suspect]
     Route: 042
     Dates: start: 20011015
  10. PREDNISOLONE [Concomitant]
     Dates: start: 20011015
  11. HUMIRA [Suspect]
     Indication: RHEUMATOID ARTHRITIS
     Route: 065
     Dates: start: 20040115
  12. MYOCRISIN [Concomitant]
     Dates: start: 20040513
  13. SULFASALAZINE [Concomitant]
     Dates: start: 20040513
  14. METHOTREXATE [Concomitant]
     Dates: start: 20040513
  15. CYCLOPHOSPHAMIDE [Concomitant]
     Dates: start: 20040513
  16. HUMIRA [Suspect]
     Dosage: CONFLICTINGLY REPORTED AS DATE OF LAST ADMINSTARTION
     Route: 065
     Dates: start: 20100407

REACTIONS (1)
  - UTERINE CANCER [None]
